FAERS Safety Report 21189430 (Version 2)
Quarter: 2022Q3

REPORT INFORMATION
  Report Type: Spontaneous
  Country: PT (occurrence: PT)
  Receive Date: 20220809
  Receipt Date: 20220817
  Transmission Date: 20221027
  Serious: Yes (Death, Other)
  Sender: FDA-Public Use
  Company Number: PT-ELI_LILLY_AND_COMPANY-PT202207004881

PATIENT
  Age: 37 Year
  Sex: Female

DRUGS (5)
  1. GEMCITABINE [Suspect]
     Active Substance: GEMCITABINE
     Indication: Product used for unknown indication
     Dosage: 1690 MG, UNKNOWN
     Route: 065
     Dates: start: 20211013, end: 202112
  2. GEMCITABINE [Suspect]
     Active Substance: GEMCITABINE
     Dosage: UNK (25% DOSE REDUCTION GEMCITABINE))
     Route: 065
     Dates: start: 202112
  3. VINORELBINE [Suspect]
     Active Substance: VINORELBINE TARTRATE
     Indication: Product used for unknown indication
     Dosage: 60 MG, UNKNOWN
     Route: 065
     Dates: start: 20220111, end: 202201
  4. CARBOPLATIN [Suspect]
     Active Substance: CARBOPLATIN
     Indication: Product used for unknown indication
     Dosage: 750 MILLIGRAM, UNKNOWN
     Route: 065
     Dates: start: 20211013, end: 202112
  5. CARBOPLATIN [Suspect]
     Active Substance: CARBOPLATIN
     Dosage: UNK UNK, UNKNOWN (50% DOSE REDUCTION OF CARBOPLATIN)
     Route: 065
     Dates: start: 202112

REACTIONS (11)
  - Death [Fatal]
  - Malignant neoplasm progression [Unknown]
  - Ascites [Unknown]
  - Facial paralysis [Unknown]
  - Haemorrhagic stroke [Unknown]
  - Jaundice [Unknown]
  - Liver function test increased [Unknown]
  - Splenomegaly [Unknown]
  - Adverse event [Unknown]
  - Pruritus [Unknown]
  - Haematotoxicity [Unknown]

NARRATIVE: CASE EVENT DATE: 20211201
